FAERS Safety Report 8263921-8 (Version None)
Quarter: 2012Q2

REPORT INFORMATION
  Report Type: 
  Country: None (occurrence: None)
  Receive Date: 20120406
  Receipt Date: 20120402
  Transmission Date: 20120825
  Serious: Yes (Hospitalization)
  Sender: FDA-Public Use
  Company Number: FI-AMGEN-FINSP2012020631

PATIENT
  Sex: Female

DRUGS (16)
  1. ORMOX [Concomitant]
     Dosage: 10 MG, UNK
  2. TENOX                              /00393701/ [Concomitant]
     Dosage: 10 MG, UNK
  3. IMOVANE [Concomitant]
     Dosage: 7.5 MG, UNK
  4. PROLIA [Suspect]
     Indication: OSTEOPOROSIS
     Dosage: 60 MG, UNK
     Route: 058
     Dates: start: 20110301, end: 20110930
  5. LITALGIN                           /00320201/ [Concomitant]
  6. DIFORMIN [Concomitant]
     Dosage: 500 MG, UNK
  7. CALCICHEW D3 FORTE [Concomitant]
  8. KALISOL [Concomitant]
     Dosage: 50 MG/ML, UNK
  9. REDOL COMP. [Concomitant]
     Route: 048
  10. IMOCUR                             /00384302/ [Concomitant]
     Dosage: 2 MG, UNK
  11. NITROMEX [Concomitant]
     Dosage: 0.25 MG, UNK
     Route: 060
  12. EMCONCOR COMP [Concomitant]
  13. OXYCODONE HCL [Concomitant]
     Dosage: 10 MG/ML, UNK
  14. PRECOSA [Concomitant]
     Dosage: 250 MG, UNK
  15. MICARDIS [Concomitant]
     Dosage: 80 MG, UNK
  16. SERONIL [Concomitant]
     Dosage: 20 MG, UNK

REACTIONS (1)
  - DEMYELINATING POLYNEUROPATHY [None]
